FAERS Safety Report 20509195 (Version 1)
Quarter: 2022Q1

REPORT INFORMATION
  Report Type: Report from Study
  Country: EG (occurrence: EG)
  Receive Date: 20220223
  Receipt Date: 20220223
  Transmission Date: 20220423
  Serious: Yes (Other)
  Sender: FDA-Public Use
  Company Number: EG-BAYER-2022A022251

PATIENT

DRUGS (1)
  1. EYLEA [Suspect]
     Active Substance: AFLIBERCEPT
     Indication: Product used for unknown indication
     Dosage: UNK, THE TOTAL NUMBER OF INJECTIONS IS THREE (TWO FOR THE LEFT EYE AND ONE FOR THE RIGHT EYE)
     Route: 031
     Dates: start: 20210202

REACTIONS (2)
  - Extraocular muscle paresis [Unknown]
  - Product administered at inappropriate site [Not Recovered/Not Resolved]

NARRATIVE: CASE EVENT DATE: 20211201
